FAERS Safety Report 5350461-9 (Version None)
Quarter: 2007Q2

REPORT INFORMATION
  Report Type: 
  Country: None (occurrence: None)
  Receive Date: 20070608
  Receipt Date: 20070604
  Transmission Date: 20071010
  Serious: Yes (Other)
  Sender: FDA-Public Use
  Company Number: PHEH2007US07738

PATIENT
  Age: 53 Year
  Sex: Female

DRUGS (19)
  1. ZOMETA [Suspect]
     Indication: HYPERCALCAEMIA OF MALIGNANCY
     Dosage: 4 MG MONTLY
     Dates: start: 20031125, end: 20070323
  2. DECADRON [Concomitant]
  3. TAXOL [Concomitant]
     Indication: NON-SMALL CELL LUNG CANCER
     Dates: start: 20051001
  4. CARBOPLATIN [Concomitant]
     Indication: NON-SMALL CELL LUNG CANCER
     Dates: start: 20030801, end: 20040901
  5. AVASTIN [Concomitant]
     Indication: NON-SMALL CELL LUNG CANCER
     Dates: start: 20030801, end: 20040901
  6. TARCEVA [Concomitant]
     Indication: NON-SMALL CELL LUNG CANCER
     Dates: start: 20050901
  7. CISPLATIN [Concomitant]
     Indication: NON-SMALL CELL LUNG CANCER
     Dates: start: 20060501, end: 20061101
  8. VERSED [Concomitant]
     Dosage: 2 MG, UNK
     Dates: start: 20061211, end: 20061211
  9. VERSED [Concomitant]
     Dosage: 2 MG, UNK
     Dates: start: 20070205, end: 20070205
  10. SUBLIMAZE PRESERVATIVE FREE [Concomitant]
     Dosage: 1 ML, UNK
     Dates: start: 20061211, end: 20061211
  11. SUBLIMAZE PRESERVATIVE FREE [Concomitant]
     Dosage: 1 MG, UNK
     Dates: start: 20070205, end: 20070205
  12. PROPOFOL [Concomitant]
     Dosage: 50 MG, UNK
     Dates: start: 20061211, end: 20061211
  13. PROPOFOL [Concomitant]
     Dosage: 50 MG, UNK
     Dates: start: 20070205, end: 20070205
  14. LIDOCAINE [Concomitant]
     Dosage: 5.4 ML 2%
     Dates: start: 20061211, end: 20061211
  15. LIDOCAINE [Concomitant]
     Dosage: 5.4 ML 2%
     Dates: start: 20070205, end: 20070205
  16. PROMETHAZINE [Concomitant]
     Dosage: 12.5 MG, UNK
     Route: 042
     Dates: start: 20061211, end: 20061211
  17. PROMETHAZINE [Concomitant]
     Dosage: 12.5 MG, UNK
     Route: 042
     Dates: start: 20070205, end: 20070205
  18. NAVELBINE [Concomitant]
     Indication: NON-SMALL CELL LUNG CANCER
     Dates: start: 20030801, end: 20040901
  19. TAXOTERE [Concomitant]
     Indication: NON-SMALL CELL LUNG CANCER
     Dates: start: 20050801, end: 20050901

REACTIONS (6)
  - BONE DISORDER [None]
  - ERYTHEMA [None]
  - ORAL SOFT TISSUE DISORDER [None]
  - OSTEONECROSIS [None]
  - SWELLING [None]
  - TOOTH EXTRACTION [None]
